FAERS Safety Report 5123642-7 (Version None)
Quarter: 2006Q4

REPORT INFORMATION
  Report Type: 
  Country: None (occurrence: None)
  Receive Date: 20060910
  Receipt Date: 20051010
  Transmission Date: 20070319
  Serious: Yes (Hospitalization, Other)
  Sender: FDA-Public Use
  Company Number: USA040360977

PATIENT
  Age: 71 Year
  Sex: Female
  Weight: 90.9 kg

DRUGS (2)
  1. HUMULIN N [Suspect]
     Indication: DIABETES MELLITUS
     Dosage: 60 U, DAILY (1/D)
     Dates: start: 20020101
  2. INSULIN (INSULIN, ANIMAL) VIAL [Suspect]

REACTIONS (9)
  - BLOOD GLUCOSE DECREASED [None]
  - BLOOD GLUCOSE FLUCTUATION [None]
  - DIABETIC NEUROPATHY [None]
  - DYSSTASIA [None]
  - HAEMOLYTIC ANAEMIA [None]
  - HYPERSENSITIVITY [None]
  - MULTIPLE ALLERGIES [None]
  - SPHEROCYTIC ANAEMIA [None]
  - WEIGHT DECREASED [None]
